FAERS Safety Report 7801401-1 (Version None)
Quarter: 2011Q4

REPORT INFORMATION
  Report Type: 
  Country: None (occurrence: None)
  Receive Date: 20111007
  Receipt Date: 20110926
  Transmission Date: 20120403
  Serious: Yes (Hospitalization)
  Sender: FDA-Public Use
  Company Number: US-BAYER-2011-005998

PATIENT
  Age: 28 Year
  Sex: Female
  Weight: 56.236 kg

DRUGS (4)
  1. TEKTURNA [Concomitant]
     Indication: BLOOD PRESSURE ABNORMAL
     Dosage: 75 MG, QD
     Dates: start: 20080722, end: 20090804
  2. BYSTOLIC [Concomitant]
     Indication: BLOOD PRESSURE ABNORMAL
     Dosage: 5 MG, QD
     Dates: start: 20080606
  3. YAZ [Suspect]
     Indication: CONTRACEPTION
     Dosage: UNK
     Dates: start: 20080107, end: 20090709
  4. ACYCLOVIR ALPHARMA [ACICLOVIR SODIUM] [Concomitant]
     Dosage: 400 MG, PRN
     Dates: start: 20040101, end: 20091201

REACTIONS (7)
  - CHOLELITHIASIS [None]
  - DIARRHOEA [None]
  - EMOTIONAL DISTRESS [None]
  - CHOLECYSTITIS ACUTE [None]
  - ABDOMINAL INJURY [None]
  - PAIN [None]
  - ANXIETY [None]
